FAERS Safety Report 23097024 (Version 1)
Quarter: 2023Q4

REPORT INFORMATION
  Report Type: Spontaneous
  Country: AT (occurrence: AT)
  Receive Date: 20231023
  Receipt Date: 20231023
  Transmission Date: 20240109
  Serious: Yes (Other)
  Sender: FDA-Public Use
  Company Number: AT-JNJFOC-20231037936

PATIENT
  Age: 82 Year
  Sex: Male

DRUGS (10)
  1. ERLEADA [Suspect]
     Active Substance: APALUTAMIDE
     Indication: Hormone-dependent prostate cancer
     Route: 048
     Dates: start: 202011
  2. LEUPROLIDE ACETATE [Concomitant]
     Active Substance: LEUPROLIDE ACETATE
     Indication: Hormone-dependent prostate cancer
  3. LISINOPRIL [Concomitant]
     Active Substance: LISINOPRIL
  4. BISOPROLOL FUMARATE [Concomitant]
     Active Substance: BISOPROLOL FUMARATE
  5. LEVETIRACETAM [Concomitant]
     Active Substance: LEVETIRACETAM
  6. CHOLECALCIFEROL [Concomitant]
     Active Substance: CHOLECALCIFEROL
  7. LASIX [Concomitant]
     Active Substance: FUROSEMIDE
  8. DORZOLAMIDE HYDROCHLORIDE\TIMOLOL MALEATE [Concomitant]
     Active Substance: DORZOLAMIDE HYDROCHLORIDE\TIMOLOL MALEATE
  9. ALPHAGAN P [Concomitant]
     Active Substance: BRIMONIDINE TARTRATE
     Dosage: LEFT EYE
  10. BIMATO VISION [Concomitant]

REACTIONS (4)
  - Bladder outlet obstruction [Unknown]
  - Inguinal hernia [Recovering/Resolving]
  - Fatigue [Recovered/Resolved]
  - COVID-19 [Unknown]
